FAERS Safety Report 8431450-4 (Version None)
Quarter: 2012Q2

REPORT INFORMATION
  Report Type: 
  Country: None (occurrence: None)
  Receive Date: 20120604
  Receipt Date: 20120525
  Transmission Date: 20120825
  Serious: Yes (Hospitalization)
  Sender: FDA-Public Use
  Company Number: IPC201205-000237

PATIENT
  Age: 72 Year
  Sex: Female

DRUGS (1)
  1. HYDROXYCHLOROQUINE SULFATE [Suspect]
     Indication: SYSTEMIC LUPUS ERYTHEMATOSUS

REACTIONS (7)
  - CARDIAC FAILURE [None]
  - FAILURE TO THRIVE [None]
  - HEPATOTOXICITY [None]
  - ABDOMINAL PAIN [None]
  - ALANINE AMINOTRANSFERASE INCREASED [None]
  - CARDIOMYOPATHY [None]
  - ASPARTATE AMINOTRANSFERASE INCREASED [None]
